FAERS Safety Report 5611610-8 (Version None)
Quarter: 2008Q1

REPORT INFORMATION
  Report Type: 
  Country: None (occurrence: None)
  Receive Date: 20080201
  Receipt Date: 20080123
  Transmission Date: 20080703
  Serious: Yes (Other)
  Sender: FDA-Public Use
  Company Number: US-PFIZER INC-2008007755

PATIENT
  Age: 25 Year
  Sex: Male
  Weight: 113.4 kg

DRUGS (8)
  1. XANAX [Suspect]
     Indication: DEPRESSION
     Dates: start: 20070216, end: 20070321
  2. XANAX [Suspect]
     Indication: ANXIETY
  3. LEXAPRO [Suspect]
     Indication: DEPRESSION
     Dates: start: 20070201, end: 20070101
  4. LEXAPRO [Suspect]
     Indication: ANXIETY
  5. EFFEXOR [Suspect]
  6. PAROXETINE [Concomitant]
     Dosage: DAILY DOSE:20MG
     Dates: start: 20070309, end: 20070321
  7. RISPERDAL [Concomitant]
     Indication: BIPOLAR DISORDER
     Dosage: DAILY DOSE:3MG
     Dates: start: 20070321, end: 20070403
  8. LITHIUM CARBONATE [Concomitant]
     Dates: start: 20070321, end: 20070403

REACTIONS (6)
  - ANXIETY [None]
  - DEPRESSION [None]
  - OVERDOSE [None]
  - ROAD TRAFFIC ACCIDENT [None]
  - SUICIDAL IDEATION [None]
  - SUICIDE ATTEMPT [None]
